FAERS Safety Report 8583213-7 (Version None)
Quarter: 2012Q3

REPORT INFORMATION
  Report Type: 
  Country: None (occurrence: None)
  Receive Date: 20120809
  Receipt Date: 20120802
  Transmission Date: 20120928
  Serious: Yes (Hospitalization)
  Sender: FDA-Public Use
  Company Number: US-ACTELION-A-US2011-46039

PATIENT
  Age: 75 Year
  Sex: Female

DRUGS (2)
  1. FLUTICASONE PROPIONATE [Concomitant]
  2. TRACLEER [Suspect]
     Indication: PULMONARY ARTERIAL HYPERTENSION
     Dosage: UNK
     Route: 048

REACTIONS (3)
  - MENISCUS LESION [None]
  - FALL [None]
  - KNEE ARTHROPLASTY [None]
